FAERS Safety Report 6264787-8 (Version None)
Quarter: 2009Q3

REPORT INFORMATION
  Report Type: 
  Country: None (occurrence: None)
  Receive Date: 20090710
  Receipt Date: 20090707
  Transmission Date: 20100115
  Serious: Yes (Other)
  Sender: FDA-Public Use
  Company Number: DE-BRISTOL-MYERS SQUIBB COMPANY-14693683

PATIENT
  Age: 66 Year
  Sex: Male

DRUGS (2)
  1. TAXOL [Suspect]
     Dates: end: 20071201
  2. CARBOPLATIN [Suspect]
     Dates: end: 20071201

REACTIONS (1)
  - ORGANISING PNEUMONIA [None]
